FAERS Safety Report 5902518-9 (Version None)
Quarter: 2008Q3

REPORT INFORMATION
  Report Type: 
  Country: None (occurrence: None)
  Receive Date: 20080925
  Receipt Date: 20080911
  Transmission Date: 20090109
  Serious: No
  Sender: FDA-Public Use
  Company Number: C-08-0045-W

PATIENT
  Age: 76 Year
  Sex: Female
  Weight: 56.246 kg

DRUGS (2)
  1. ZOLPIDEM TARTRATE [Suspect]
     Indication: INSOMNIA
     Dosage: 1 TABLET, ORALLY
     Route: 048
     Dates: start: 20080101, end: 20080301
  2. PREMARIN AND LOW DOSE ASPIRIN [Concomitant]

REACTIONS (2)
  - PAROSMIA [None]
  - PHARMACEUTICAL PRODUCT COMPLAINT [None]
